FAERS Safety Report 12610970 (Version 1)
Quarter: 2016Q3

REPORT INFORMATION
  Report Type: Spontaneous
  Country: GB (occurrence: GB)
  Receive Date: 20160801
  Receipt Date: 20160801
  Transmission Date: 20161109
  Serious: Yes (Hospitalization)
  Sender: FDA-Public Use
  Company Number: PHHY2016GB102399

PATIENT
  Sex: Female

DRUGS (1)
  1. PHENOXYMETHYLPENICILLIN [Suspect]
     Active Substance: PENICILLIN V
     Indication: PRODUCT USED FOR UNKNOWN INDICATION
     Dosage: 8 DF, QD (10 TAKEN IN TOTAL)
     Route: 065

REACTIONS (2)
  - Wheezing [Unknown]
  - Chest discomfort [Unknown]
